FAERS Safety Report 11143208 (Version 1)
Quarter: 2015Q2

REPORT INFORMATION
  Report Type: Spontaneous
  Country: US (occurrence: US)
  Receive Date: 20150526
  Receipt Date: 20150526
  Transmission Date: 20150821
  Serious: No
  Sender: FDA-Public Use
  Company Number: US-NOVEN PHARMACEUTICALS, INC.-US2015000046

PATIENT
  Age: 43 Year
  Sex: Female

DRUGS (1)
  1. MINIVELLE [Suspect]
     Active Substance: ESTRADIOL
     Indication: HORMONE REPLACEMENT THERAPY
     Dosage: 0.075 MG, UNK. ON 01 MAR 2015, NEW BOX WAS USED WITH LOT NO. 76056 AND EXP DATE: JUN 2016
     Route: 062
     Dates: start: 2013

REACTIONS (4)
  - Mood swings [Unknown]
  - Night sweats [Unknown]
  - Drug ineffective [Unknown]
  - Hot flush [Unknown]

NARRATIVE: CASE EVENT DATE: 20150301
